FAERS Safety Report 23930136 (Version 1)
Quarter: 2024Q2

REPORT INFORMATION
  Report Type: Spontaneous
  Country: RO (occurrence: RO)
  Receive Date: 20240601
  Receipt Date: 20240601
  Transmission Date: 20240716
  Serious: Yes (Death, Life-Threatening, Other)
  Sender: FDA-Public Use
  Company Number: RO-Accord-424808

PATIENT
  Age: 63 Year
  Sex: Female

DRUGS (12)
  1. PEGFILGRASTIM [Suspect]
     Active Substance: PEGFILGRASTIM
     Indication: Prophylaxis
     Dosage: UNK
     Route: 065
  2. ZOMETA [Suspect]
     Active Substance: ZOLEDRONIC ACID
     Indication: Metastasis
     Dosage: 4 MILLIGRAM, Q3-4W
     Route: 065
  3. FEMARA [Suspect]
     Active Substance: LETROZOLE
     Indication: Metastasis
     Dosage: 2.5 MILLIGRAM, QD
     Route: 065
     Dates: start: 201808, end: 201905
  4. FEMARA [Suspect]
     Active Substance: LETROZOLE
     Indication: Metastasis
     Dosage: 2.5 MILLIGRAM, QD
     Route: 065
     Dates: start: 201808, end: 202203
  5. FEMARA [Suspect]
     Active Substance: LETROZOLE
     Dosage: 2.5 MILLIGRAM, QD
     Route: 065
     Dates: start: 202206
  6. ALPELISIB [Suspect]
     Active Substance: ALPELISIB
     Indication: Metastasis
     Dosage: UNK
     Route: 065
  7. FASLODEX [Suspect]
     Active Substance: FULVESTRANT
     Indication: Metastasis
     Dosage: UNK
     Route: 065
  8. TAXOTERE [Suspect]
     Active Substance: DOCETAXEL
     Indication: Metastasis
     Dosage: 75 MILLIGRAM/SQ. METER, Q3W
     Route: 065
     Dates: start: 201802, end: 201808
  9. PALBOCICLIB [Suspect]
     Active Substance: PALBOCICLIB
     Indication: Metastasis
     Dosage: 125 MILLIGRAM, QD, 21 DAYS IN A 28 DAY CYCLE 125
     Route: 065
     Dates: start: 201808, end: 201905
  10. PALBOCICLIB [Suspect]
     Active Substance: PALBOCICLIB
     Indication: Metastasis
     Dosage: 125 MILLIGRAM, QD, 21 DAYS IN A 28 DAY CYCLE 100 MG
     Route: 065
     Dates: start: 201808, end: 202203
  11. PALBOCICLIB [Suspect]
     Active Substance: PALBOCICLIB
     Dosage: UNK
     Route: 065
     Dates: start: 202206
  12. TAXOL [Suspect]
     Active Substance: PACLITAXEL
     Indication: Breast cancer
     Dosage: 90 MILLIGRAM/SQ. METER, DAY 1,8,15, Q4W
     Route: 065

REACTIONS (5)
  - Death [Fatal]
  - Febrile neutropenia [Unknown]
  - Thrombocytopenia [Recovered/Resolved]
  - Neuropathy peripheral [Unknown]
  - Disease progression [Unknown]

NARRATIVE: CASE EVENT DATE: 20230601
